FAERS Safety Report 11347249 (Version 1)
Quarter: 2015Q3

REPORT INFORMATION
  Report Type: Spontaneous
  Country: US (occurrence: US)
  Receive Date: 20150806
  Receipt Date: 20150806
  Transmission Date: 20151125
  Serious: No
  Sender: FDA-Public Use
  Company Number: US-BAYER-2015-388422

PATIENT
  Age: 48 Year
  Sex: Female
  Weight: 79 kg

DRUGS (2)
  1. VITAMINS NOS [Concomitant]
     Active Substance: VITAMINS
  2. CLARITIN [Suspect]
     Active Substance: LORATADINE
     Indication: HISTAMINE INTOLERANCE
     Dosage: 1 DF, UNK
     Route: 048
     Dates: start: 201503, end: 20150724

REACTIONS (4)
  - Throat irritation [Recovered/Resolved]
  - Product use issue [Unknown]
  - Product use issue [Unknown]
  - Product use issue [Unknown]

NARRATIVE: CASE EVENT DATE: 201503
